FAERS Safety Report 18712423 (Version 6)
Quarter: 2023Q4

REPORT INFORMATION
  Report Type: Report from Study
  Country: DE (occurrence: DE)
  Receive Date: 20210107
  Receipt Date: 20231229
  Transmission Date: 20240110
  Serious: Yes (Life-Threatening, Hospitalization)
  Sender: FDA-Public Use
  Company Number: DE-BOEHRINGERINGELHEIM-2021-BI-074316

PATIENT
  Age: 63 Year
  Sex: Female
  Weight: 55 kg

DRUGS (2)
  1. NINTEDANIB [Suspect]
     Active Substance: NINTEDANIB
     Indication: Lung adenocarcinoma
     Route: 048
     Dates: start: 20201127, end: 20201201
  2. DOCETAXEL [Suspect]
     Active Substance: DOCETAXEL\DOCETAXEL ANHYDROUS
     Indication: Lung adenocarcinoma
     Dosage: FORM OF ADMIN: LIQUID
     Route: 042
     Dates: start: 20201126, end: 20201126

REACTIONS (2)
  - White blood cell count decreased [Recovered/Resolved]
  - Enterocolitis infectious [Recovered/Resolved]

NARRATIVE: CASE EVENT DATE: 20201201
